FAERS Safety Report 9764475 (Version 1)
Quarter: 2013Q4

REPORT INFORMATION
  Report Type: Spontaneous
  Country: US (occurrence: US)
  Receive Date: 20131217
  Receipt Date: 20131217
  Transmission Date: 20140711
  Serious: No
  Sender: FDA-Public Use
  Company Number: US-BIOGENIDEC-2013BI120240

PATIENT
  Sex: Male

DRUGS (8)
  1. AVONEX [Suspect]
     Indication: MULTIPLE SCLEROSIS
     Route: 030
     Dates: start: 20110310
  2. ALEVE [Concomitant]
  3. DANTROLENE SODIUM [Concomitant]
  4. GABAPENTIN [Concomitant]
  5. OXYBUTYNIN CHLORIDE [Concomitant]
  6. TIZANIDINE HCL [Concomitant]
  7. VICODIN [Concomitant]
  8. VITAMIN B12 [Concomitant]

REACTIONS (1)
  - Diabetes mellitus [Unknown]
